FAERS Safety Report 5329032-6 (Version None)
Quarter: 2007Q2

REPORT INFORMATION
  Report Type: 
  Country: None (occurrence: None)
  Receive Date: 20070518
  Receipt Date: 20070507
  Transmission Date: 20071010
  Serious: Yes (Hospitalization, Other)
  Sender: FDA-Public Use
  Company Number: US-PFIZER INC-2006014970

PATIENT
  Sex: Male

DRUGS (6)
  1. NEURONTIN [Suspect]
     Indication: PAIN
     Dates: start: 20030101, end: 20040101
  2. NEURONTIN [Suspect]
     Indication: DEPRESSION
  3. EFFEXOR [Concomitant]
  4. RISPERDAL [Concomitant]
  5. TOPAMAX [Concomitant]
  6. VICODIN [Concomitant]
     Indication: MUSCULOSKELETAL PAIN

REACTIONS (6)
  - DEPRESSION [None]
  - DRUG INEFFECTIVE [None]
  - HALLUCINATION, AUDITORY [None]
  - HALLUCINATION, VISUAL [None]
  - PARANOIA [None]
  - SUICIDE ATTEMPT [None]
